FAERS Safety Report 9888821 (Version 2)
Quarter: 2014Q1

REPORT INFORMATION
  Report Type: Spontaneous
  Country: US (occurrence: None)
  Receive Date: 20140207
  Receipt Date: 20140218
  Transmission Date: 20141002
  Serious: Yes (Death, Hospitalization)
  Sender: FDA-Public Use
  Company Number: US-000921

PATIENT
  Sex: Female

DRUGS (2)
  1. GATTEX 0.18 ML [Suspect]
     Indication: SHORT-BOWEL SYNDROME
     Dosage: (0.18ML QD, STREN/VOLUM: 0.18 ML|FREQ: ONCE A DAY SUBCUTANEOUS)
     Route: 058
     Dates: start: 201307
  2. SOLUTIONS FOR PARENTERAL NUTRITION [Concomitant]

REACTIONS (2)
  - Death [None]
  - Cachexia [None]
